FAERS Safety Report 12145841 (Version 1)
Quarter: 2016Q1

REPORT INFORMATION
  Report Type: Spontaneous
  Country: GB (occurrence: GB)
  Receive Date: 20160304
  Receipt Date: 20160304
  Transmission Date: 20160526
  Serious: Yes (Other)
  Sender: FDA-Public Use
  Company Number: GB-JNJFOC-20160226230

PATIENT
  Age: 38 Year
  Sex: Male
  Weight: 99 kg

DRUGS (6)
  1. DOMPERIDONE [Concomitant]
     Active Substance: DOMPERIDONE
     Indication: GASTRIC DISORDER
     Dosage: DOSE: ^10^
     Route: 065
     Dates: start: 201210
  2. COCODAMOL [Concomitant]
     Active Substance: ACETAMINOPHEN\CODEINE PHOSPHATE
     Indication: PAIN IN EXTREMITY
     Dosage: 30/500 MG; 1-2 UPTO 4 TIMES A DAY
     Route: 065
  3. CANAGLIFLOZIN [Suspect]
     Active Substance: CANAGLIFLOZIN
     Indication: TYPE 2 DIABETES MELLITUS
     Dosage: DOSE: ^100^
     Route: 065
     Dates: start: 20151030, end: 20160212
  4. ESOMEPRAZOLE [Concomitant]
     Active Substance: ESOMEPRAZOLE
     Indication: GASTRIC DISORDER
     Dosage: DOSE: ^40^
     Route: 065
     Dates: start: 201307
  5. LOPERAMIDE [Concomitant]
     Active Substance: LOPERAMIDE
     Indication: IRRITABLE BOWEL SYNDROME
     Dosage: DOSE: ^2^
     Route: 065
     Dates: start: 201310
  6. METFORMIN [Concomitant]
     Active Substance: METFORMIN HYDROCHLORIDE
     Indication: TYPE 2 DIABETES MELLITUS
     Dosage: DOSE: ^2^
     Route: 065
     Dates: start: 201310

REACTIONS (1)
  - Photosensitivity reaction [Recovering/Resolving]

NARRATIVE: CASE EVENT DATE: 20160129
